FAERS Safety Report 7238061-7 (Version None)
Quarter: 2011Q1

REPORT INFORMATION
  Report Type: 
  Country: None (occurrence: None)
  Receive Date: 20110121
  Receipt Date: 20110114
  Transmission Date: 20110831
  Serious: Yes (Hospitalization)
  Sender: FDA-Public Use
  Company Number: B0686802A

PATIENT
  Sex: Male

DRUGS (3)
  1. PAXIL [Suspect]
     Indication: ANXIETY DISORDER
     Dosage: 40MG PER DAY
     Route: 048
     Dates: start: 20100819, end: 20101112
  2. GASMOTIN [Suspect]
     Indication: NAUSEA
     Dosage: 5MG PER DAY
     Route: 048
     Dates: end: 20101112
  3. MEDEPOLIN [Suspect]
     Indication: ANXIETY DISORDER
     Dosage: .8MG PER DAY
     Route: 048
     Dates: end: 20101112

REACTIONS (6)
  - MALAISE [None]
  - NAUSEA [None]
  - NIGHT SWEATS [None]
  - PYREXIA [None]
  - HEPATIC FUNCTION ABNORMAL [None]
  - ABDOMINAL PAIN [None]
